FAERS Safety Report 25166304 (Version 2)
Quarter: 2025Q2

REPORT INFORMATION
  Report Type: Spontaneous
  Country: MX (occurrence: MX)
  Receive Date: 20250407
  Receipt Date: 20250507
  Transmission Date: 20250717
  Serious: No
  Sender: AMGEN
  Company Number: MX-AMGEN-MEXSP2025064980

PATIENT

DRUGS (1)
  1. PEGFILGRASTIM [Suspect]
     Active Substance: PEGFILGRASTIM
     Indication: Product used for unknown indication
     Route: 065

REACTIONS (1)
  - Device issue [Unknown]
